APPROVED DRUG PRODUCT: NILSTAT
Active Ingredient: NYSTATIN
Strength: 100% **Federal Register determination that product was not discontinued or withdrawn for safety or effectiveness reasons**
Dosage Form/Route: POWDER;ORAL
Application: N050576 | Product #001
Applicant: STRIDES PHARMA INTERNATIONAL AG
Approved: Dec 22, 1983 | RLD: Yes | RS: No | Type: DISCN